FAERS Safety Report 5686914-3 (Version None)
Quarter: 2008Q1

REPORT INFORMATION
  Report Type: 
  Country: None (occurrence: None)
  Receive Date: 20080328
  Receipt Date: 20070604
  Transmission Date: 20080703
  Serious: No
  Sender: FDA-Public Use
  Company Number: US-BAYER-US-2007-021177

PATIENT
  Age: 43 Year
  Sex: Female
  Weight: 100 kg

DRUGS (4)
  1. MIRENA [Suspect]
     Indication: CONTRACEPTION
     Route: 015
     Dates: start: 20070301
  2. ATENOLOL [Concomitant]
  3. TAMPACOR [Concomitant]
  4. MULTIVITAMINS AND IRON [Concomitant]

REACTIONS (4)
  - ABDOMINAL PAIN [None]
  - ACNE [None]
  - BREAST TENDERNESS [None]
  - HYPERTENSION [None]
